FAERS Safety Report 14502749 (Version 1)
Quarter: 2018Q1

REPORT INFORMATION
  Report Type: Spontaneous
  Country: US (occurrence: US)
  Receive Date: 20180206
  Receipt Date: 20180206
  Transmission Date: 20180509
  Serious: Yes (Other)
  Sender: FDA-Public Use
  Company Number: None

PATIENT
  Age: 70 Year
  Sex: Male
  Weight: 108.7 kg

DRUGS (2)
  1. REGADENOSON [Suspect]
     Active Substance: REGADENOSON
     Indication: SURGERY
     Route: 042
     Dates: start: 20150821, end: 20150821
  2. REGADENOSON [Suspect]
     Active Substance: REGADENOSON
     Indication: CARDIOVASCULAR DISORDER
     Route: 042
     Dates: start: 20150821, end: 20150821

REACTIONS (7)
  - Bradycardia [None]
  - Dizziness [None]
  - Dyspnoea [None]
  - Wheezing [None]
  - Sinus arrest [None]
  - Hyperhidrosis [None]
  - Cough [None]

NARRATIVE: CASE EVENT DATE: 20150821
